FAERS Safety Report 8811330 (Version 1)
Quarter: 2012Q4

REPORT INFORMATION
  Report Type: 
  Country: TR (occurrence: TR)
  Receive Date: 20120927
  Receipt Date: 20120927
  Transmission Date: 20130627
  Serious: Yes (Death)
  Sender: FDA-Public Use
  Company Number: TR-ELI_LILLY_AND_COMPANY-TR201209004191

PATIENT
  Sex: Female

DRUGS (4)
  1. ZYPREXA VELOTAB [Suspect]
     Dosage: 5 mg, unknown
  2. CYMBALTA [Suspect]
  3. NORODOL [Concomitant]
  4. AKINETON                           /00079501/ [Concomitant]

REACTIONS (1)
  - Death [Fatal]
